FAERS Safety Report 8568542 (Version 5)
Quarter: 2012Q4

REPORT INFORMATION
  Report Type: Report from Study
  Country: JP (occurrence: JP)
  Receive Date: 20120518
  Receipt Date: 20120913
  Transmission Date: 20130627
  Serious: Yes (Death, Other)
  Sender: FDA-Public Use
  Company Number: JP-PFIZER INC-2012117752

PATIENT
  Age: 79 Year
  Sex: Male

DRUGS (1)
  1. PIPERACILLIN/TAZOBACTAM STRAGEN [Suspect]
     Dosage: 13.5 g, 1x/day
     Route: 041
     Dates: start: 20111219, end: 20120108

REACTIONS (1)
  - Pneumothorax [Fatal]
